FAERS Safety Report 20472684 (Version 3)
Quarter: 2022Q2

REPORT INFORMATION
  Report Type: Report from Study
  Country: US (occurrence: US)
  Receive Date: 20220215
  Receipt Date: 20220418
  Transmission Date: 20220721
  Serious: No
  Sender: FDA-Public Use
  Company Number: US-Ipsen Biopharmaceuticals, Inc.-2022-03486

PATIENT
  Age: 33 Year
  Sex: Female

DRUGS (1)
  1. SOMATULINE DEPOT [Suspect]
     Active Substance: LANREOTIDE ACETATE
     Indication: Acromegaly
     Dosage: 120 MG/ 0.5 ML
     Route: 058
     Dates: start: 2017

REACTIONS (7)
  - Symptom recurrence [Unknown]
  - Facial pain [Not Recovered/Not Resolved]
  - Depression [Recovering/Resolving]
  - Impaired work ability [Unknown]
  - Unevaluable event [Unknown]
  - Incorrect product administration duration [Unknown]
  - Therapeutic response unexpected [Unknown]

NARRATIVE: CASE EVENT DATE: 20170101
